FAERS Safety Report 6726701-8 (Version None)
Quarter: 2010Q2

REPORT INFORMATION
  Report Type: 
  Country: None (occurrence: None)
  Receive Date: 20100514
  Receipt Date: 20100505
  Transmission Date: 20101027
  Serious: Yes (Life-Threatening, Hospitalization, Other)
  Sender: FDA-Public Use
  Company Number: US-MERCK-0912USA01653

PATIENT
  Age: 69 Year
  Sex: Female
  Weight: 81 kg

DRUGS (2)
  1. FOSAMAX [Suspect]
     Indication: OSTEOPOROSIS
     Route: 048
     Dates: start: 20050915, end: 20070806
  2. FOSAMAX PLUS D [Suspect]
     Indication: OSTEOPOROSIS
     Route: 048

REACTIONS (49)
  - ABSCESS [None]
  - ADVERSE DRUG REACTION [None]
  - ANAEMIA [None]
  - ANXIETY [None]
  - ARTHRALGIA [None]
  - ARTHROPATHY [None]
  - CATARACT [None]
  - CHRONIC OBSTRUCTIVE PULMONARY DISEASE [None]
  - CLOSTRIDIAL INFECTION [None]
  - COMPRESSION FRACTURE [None]
  - DECREASED APPETITE [None]
  - DEHYDRATION [None]
  - DENTAL CARIES [None]
  - DEPRESSION [None]
  - DIVERTICULUM INTESTINAL [None]
  - DIZZINESS [None]
  - DYSURIA [None]
  - FALL [None]
  - FISTULA DISCHARGE [None]
  - HALLUCINATION [None]
  - HYPERLIPIDAEMIA [None]
  - HYPERTENSION [None]
  - HYPOACUSIS [None]
  - INFECTION [None]
  - INTERVERTEBRAL DISC DEGENERATION [None]
  - JAW FRACTURE [None]
  - KYPHOSCOLIOSIS [None]
  - LUMBAR SPINAL STENOSIS [None]
  - MAJOR DEPRESSION [None]
  - MENTAL STATUS CHANGES [None]
  - MICTURITION URGENCY [None]
  - MUSCULOSKELETAL PAIN [None]
  - NAUSEA [None]
  - OBESITY [None]
  - OEDEMA PERIPHERAL [None]
  - OSTEOARTHRITIS [None]
  - OSTEOMYELITIS [None]
  - OSTEONECROSIS OF JAW [None]
  - PAIN [None]
  - POLLAKIURIA [None]
  - RENAL FAILURE ACUTE [None]
  - THYROID MASS [None]
  - THYROID NEOPLASM [None]
  - TONGUE ULCERATION [None]
  - TOOTH FRACTURE [None]
  - TRIGGER FINGER [None]
  - URINARY TRACT INFECTION [None]
  - WEIGHT DECREASED [None]
  - WEIGHT INCREASED [None]
